FAERS Safety Report 23731643 (Version 1)
Quarter: 2024Q2

REPORT INFORMATION
  Report Type: Spontaneous
  Country: US (occurrence: None)
  Receive Date: 20240410
  Receipt Date: 20240410
  Transmission Date: 20240716
  Serious: No
  Sender: FDA-Public Use
  Company Number: None

PATIENT
  Age: 43 Year
  Sex: Female

DRUGS (1)
  1. AMBRISENTAN [Suspect]
     Active Substance: AMBRISENTAN
     Indication: Lung disorder
     Dosage: FREQUENCY : DAILY;?
     Route: 048

REACTIONS (1)
  - Decubitus ulcer [None]

NARRATIVE: CASE EVENT DATE: 20240410
